FAERS Safety Report 5887854-7 (Version None)
Quarter: 2008Q3

REPORT INFORMATION
  Report Type: 
  Country: None (occurrence: None)
  Receive Date: 20080916
  Receipt Date: 20080902
  Transmission Date: 20090109
  Serious: Yes (Hospitalization)
  Sender: FDA-Public Use
  Company Number: 238321J08USA

PATIENT
  Age: 51 Year
  Sex: Male
  Weight: 86.637 kg

DRUGS (5)
  1. REBIF [Suspect]
     Indication: MULTIPLE SCLEROSIS
     Dosage: 44 MCG, 3 IN 1 WEEKS, SUBCUTANEOUS
     Route: 058
     Dates: start: 20021216
  2. BACLOFEN [Concomitant]
  3. CLONAZEPAM [Concomitant]
  4. ZANAFLEX [Concomitant]
  5. TOPROL-XL [Concomitant]

REACTIONS (4)
  - PNEUMONIA [None]
  - URINARY INCONTINENCE [None]
  - URINARY TRACT INFECTION [None]
  - VOMITING [None]
